FAERS Safety Report 16198316 (Version 1)
Quarter: 2019Q2

REPORT INFORMATION
  Report Type: Spontaneous
  Country: US (occurrence: US)
  Receive Date: 20190415
  Receipt Date: 20190415
  Transmission Date: 20190711
  Serious: Yes (Hospitalization, Other)
  Sender: FDA-Public Use
  Company Number: US-PFIZER INC-2019118148

PATIENT
  Age: 56 Year
  Sex: Female
  Weight: 45.81 kg

DRUGS (4)
  1. LYRICA [Suspect]
     Active Substance: PREGABALIN
     Indication: FIBROMYALGIA
  2. LYRICA [Suspect]
     Active Substance: PREGABALIN
     Indication: PAIN
     Dosage: 150 MG, 4X/DAY
     Route: 048
     Dates: end: 20190305
  3. LYRICA [Suspect]
     Active Substance: PREGABALIN
     Indication: TREMOR
  4. LYRICA [Suspect]
     Active Substance: PREGABALIN
     Indication: PARALYSIS
     Dosage: 75 MG, UNK

REACTIONS (8)
  - Rash [Unknown]
  - Fatigue [Unknown]
  - Mental disorder [Unknown]
  - Shock [Unknown]
  - Injury [Unknown]
  - Confusional state [Unknown]
  - Meniere^s disease [Unknown]
  - Product use issue [Unknown]
